FAERS Safety Report 13684949 (Version 1)
Quarter: 2017Q2

REPORT INFORMATION
  Report Type: Spontaneous
  Country: US (occurrence: US)
  Receive Date: 20170623
  Receipt Date: 20170623
  Transmission Date: 20170830
  Serious: No
  Sender: FDA-Public Use
  Company Number: US-OTONOMY INC.-2017OTO00022

PATIENT
  Age: 14 Month
  Sex: Female

DRUGS (1)
  1. OTIPRIO [Suspect]
     Active Substance: CIPROFLOXACIN
     Dosage: UNK
     Dates: start: 201704, end: 201704

REACTIONS (2)
  - Otorrhoea [Unknown]
  - Off label use [Unknown]

NARRATIVE: CASE EVENT DATE: 201704
